FAERS Safety Report 7936010-7 (Version None)
Quarter: 2011Q4

REPORT INFORMATION
  Report Type: 
  Country: None (occurrence: None)
  Receive Date: 20111121
  Receipt Date: 20111115
  Transmission Date: 20120403
  Serious: Yes (Hospitalization)
  Sender: FDA-Public Use
  Company Number: 1000025522

PATIENT
  Age: 68 Year
  Sex: Male

DRUGS (1)
  1. DALIRESP [Suspect]

REACTIONS (2)
  - HEART RATE DECREASED [None]
  - HYPOTENSION [None]
